FAERS Safety Report 4385015-4 (Version None)
Quarter: 2004Q2

REPORT INFORMATION
  Report Type: 
  Country: None (occurrence: None)
  Receive Date: 20040625
  Receipt Date: 20040618
  Transmission Date: 20050107
  Serious: Yes (Death, Hospitalization)
  Sender: FDA-Public Use
  Company Number: FRPFM-C-20040339

PATIENT
  Age: 65 Year
  Sex: Female

DRUGS (7)
  1. NAVELBINE [Suspect]
     Indication: BREAST CANCER
     Route: 048
     Dates: start: 20040505, end: 20040602
  2. CAPECITABINE [Suspect]
     Indication: BREAST CANCER
     Dosage: 1000MGM2 CYCLIC
     Route: 048
     Dates: start: 20040505, end: 20040607
  3. WARFARIN SODIUM [Concomitant]
  4. LIDOCAINE [Concomitant]
  5. DIGOXIN [Concomitant]
  6. GLIMEPIRIDE [Concomitant]
  7. PROCHLORPERAZINE [Concomitant]

REACTIONS (11)
  - BACTERIAL SEPSIS [None]
  - COAGULOPATHY [None]
  - DIARRHOEA [None]
  - HYPOXIA [None]
  - NEUTROPENIA [None]
  - OEDEMA PERIPHERAL [None]
  - PALMAR-PLANTAR ERYTHRODYSAESTHESIA SYNDROME [None]
  - PRODUCTIVE COUGH [None]
  - RENAL FAILURE [None]
  - STOMATITIS [None]
  - VOMITING [None]
